FAERS Safety Report 10449251 (Version 1)
Quarter: 2014Q3

REPORT INFORMATION
  Report Type: Spontaneous
  Country: US (occurrence: None)
  Receive Date: 20140911
  Receipt Date: 20140911
  Transmission Date: 20150326
  Serious: Yes (Other)
  Sender: FDA-Public Use
  Company Number: None

PATIENT
  Age: 53 Year
  Sex: Female
  Weight: 49.9 kg

DRUGS (15)
  1. SYNTHROID [Concomitant]
     Active Substance: LEVOTHYROXINE SODIUM
  2. PRAVASTATIN [Concomitant]
     Active Substance: PRAVASTATIN\PRAVASTATIN SODIUM
  3. TECFIDERA [Concomitant]
     Active Substance: DIMETHYL FUMARATE
  4. TECFIDERA [Suspect]
     Active Substance: DIMETHYL FUMARATE
     Indication: RELAPSING-REMITTING MULTIPLE SCLEROSIS
     Route: 048
     Dates: start: 20130828
  5. OMEPRAZOLE. [Concomitant]
     Active Substance: OMEPRAZOLE
  6. TIMOLOL [Concomitant]
     Active Substance: TIMOLOL
  7. PROBIOTIC [Concomitant]
     Active Substance: PROBIOTICS NOS
  8. DIAZEPAM. [Concomitant]
     Active Substance: DIAZEPAM
  9. LOW DOSE ASPIRIN [Concomitant]
     Active Substance: ASPIRIN
  10. HUMALOG [Concomitant]
     Active Substance: INSULIN LISPRO
  11. VITAMIN D [Concomitant]
     Active Substance: CHOLECALCIFEROL
  12. IBUPROFIN [Concomitant]
  13. INSULIN PUMP [Concomitant]
     Active Substance: INSULIN NOS
  14. BACLOFEN. [Concomitant]
     Active Substance: BACLOFEN
  15. MAGENSIUM [Concomitant]

REACTIONS (5)
  - Malaise [None]
  - Heart rate increased [None]
  - Blood glucose increased [None]
  - Pain [None]
  - Flushing [None]
